FAERS Safety Report 24368945 (Version 1)
Quarter: 2024Q3

REPORT INFORMATION
  Report Type: Report from Study
  Country: US (occurrence: US)
  Receive Date: 20240927
  Receipt Date: 20240927
  Transmission Date: 20241016
  Serious: Yes (Other)
  Sender: ABBVIE
  Company Number: US-ABBVIE-5934067

PATIENT
  Age: 49 Year
  Sex: Female
  Weight: 48 kg

DRUGS (10)
  1. SYNTHROID [Suspect]
     Active Substance: LEVOTHYROXINE SODIUM
     Indication: Uterine leiomyoma
     Dosage: EVERY MORNING (QM)
     Route: 048
     Dates: start: 202309
  2. ASPIRIN [Concomitant]
     Active Substance: ASPIRIN
     Indication: Prophylaxis
     Route: 048
     Dates: start: 202409
  3. FOLIC ACID [Concomitant]
     Active Substance: FOLIC ACID
     Indication: Product used for unknown indication
  4. IRON [Concomitant]
     Active Substance: IRON
     Indication: Mineral supplementation
     Dates: start: 202307
  5. MAGNESIUM [Concomitant]
     Active Substance: MAGNESIUM
     Indication: Mineral supplementation
     Dates: start: 202307
  6. METOPROLOL TARTRATE [Concomitant]
     Active Substance: METOPROLOL TARTRATE
     Indication: Hypertension
     Route: 048
     Dates: start: 20240502
  7. UNISOM SLEEPTABS [Concomitant]
     Active Substance: DOXYLAMINE SUCCINATE
     Indication: Morning sickness
  8. VITAMIN D [Concomitant]
     Active Substance: VITAMIN D NOS
     Indication: Vitamin supplementation
     Dates: start: 202307
  9. VITAMIN B6 [Concomitant]
     Active Substance: PYRIDOXINE HYDROCHLORIDE
     Indication: Morning sickness
  10. METOPROLOL [Concomitant]
     Active Substance: METOPROLOL
     Indication: Heart rate increased
     Route: 048
     Dates: start: 20240314

REACTIONS (7)
  - Fibroadenoma of breast [Not Recovered/Not Resolved]
  - Heart rate increased [Not Recovered/Not Resolved]
  - Maternal exposure during pregnancy [Unknown]
  - Postural orthostatic tachycardia syndrome [Recovered/Resolved]
  - Hypothyroidism [Not Recovered/Not Resolved]
  - Uterine leiomyoma [Unknown]
  - Live birth [Unknown]

NARRATIVE: CASE EVENT DATE: 20231025
